FAERS Safety Report 7230426-2 (Version None)
Quarter: 2011Q1

REPORT INFORMATION
  Report Type: 
  Country: None (occurrence: None)
  Receive Date: 20110118
  Receipt Date: 20110113
  Transmission Date: 20110831
  Serious: Yes (Death, Life-Threatening)
  Sender: FDA-Public Use
  Company Number: CL-SANOFI-AVENTIS-2011SA002480

PATIENT
  Age: 79 Year
  Sex: Male
  Weight: 68 kg

DRUGS (36)
  1. CLEXANE [Concomitant]
     Route: 058
     Dates: start: 20110105, end: 20110105
  2. ATORVASTATIN CALCIUM [Concomitant]
     Dates: start: 20110103, end: 20110105
  3. NORCURON [Concomitant]
     Dates: start: 20110106, end: 20110106
  4. CALCIUM GLUCONATE [Concomitant]
     Dates: start: 20110106, end: 20110106
  5. CALCIUM GLUCONATE [Concomitant]
     Dates: start: 20110107, end: 20110107
  6. ASPIRIN [Suspect]
     Route: 048
     Dates: start: 20110104, end: 20110104
  7. LORAZEPAM [Concomitant]
     Dates: start: 20110105, end: 20110105
  8. FUROSEMIDE [Concomitant]
     Dates: start: 20110107, end: 20110107
  9. INSULIN [Concomitant]
     Dates: start: 20110107, end: 20110109
  10. NITRODERM [Concomitant]
     Dates: start: 20110105, end: 20110106
  11. PROPOFOL [Concomitant]
     Dates: start: 20110106, end: 20110110
  12. FUROSEMIDE [Concomitant]
     Dates: start: 20110106, end: 20110106
  13. ANTIBIOTICS [Concomitant]
     Dates: start: 20110107, end: 20110107
  14. SODIUM BICARBONATE [Concomitant]
     Dates: start: 20110106, end: 20110106
  15. ASPIRIN [Suspect]
     Indication: ACUTE CORONARY SYNDROME
     Route: 048
  16. PLAVIX [Suspect]
     Indication: ACUTE CORONARY SYNDROME
     Route: 048
     Dates: start: 20110103, end: 20110103
  17. HEPARIN [Concomitant]
     Route: 040
     Dates: start: 20110105, end: 20110105
  18. HEPARIN [Concomitant]
     Route: 042
     Dates: start: 20110105, end: 20110105
  19. GLYCERYL TRINITRATE [Concomitant]
     Dates: start: 20110103, end: 20110106
  20. CEFAZOLIN SODIUM [Concomitant]
     Dates: start: 20110106, end: 20110106
  21. FENTANYL [Concomitant]
     Dates: start: 20110106, end: 20110106
  22. BLINDED THERAPY [Suspect]
     Indication: ACUTE CORONARY SYNDROME
     Route: 042
     Dates: start: 20110103, end: 20110105
  23. LORAZEPAM [Concomitant]
     Dates: start: 20110106, end: 20110106
  24. ATROPINE [Concomitant]
     Dates: start: 20110106, end: 20110106
  25. TRANEXAMIC ACID [Concomitant]
     Dates: start: 20110106, end: 20110106
  26. FENTANYL [Concomitant]
     Dates: start: 20110107, end: 20110107
  27. NEOSTIGMINE [Concomitant]
     Dates: start: 20110106, end: 20110106
  28. PRECEDEX [Concomitant]
     Dates: start: 20110106
  29. PROTAMINE SULFATE [Concomitant]
     Dates: start: 20110106, end: 20110106
  30. MIDAZOLAM [Concomitant]
     Dates: start: 20110106, end: 20110106
  31. ASPIRIN [Suspect]
     Route: 048
     Dates: start: 20110103, end: 20110103
  32. MORPHINE [Concomitant]
     Dates: start: 20110106, end: 20110106
  33. LIDOCAINE HYDROCHLORIDE IN PLASTIC CONTAINER [Concomitant]
     Dates: start: 20110106, end: 20110106
  34. SUCRALFATE [Concomitant]
     Dates: start: 20110107, end: 20110110
  35. FAMOTIDINE [Concomitant]
     Dates: start: 20110104, end: 20110105
  36. PHENYLEPHRINE [Concomitant]
     Dates: start: 20110106, end: 20110106

REACTIONS (2)
  - POST PROCEDURAL HAEMORRHAGE [None]
  - MULTI-ORGAN FAILURE [None]
